FAERS Safety Report 23893987 (Version 1)
Quarter: 2024Q2

REPORT INFORMATION
  Report Type: Spontaneous
  Country: US (occurrence: None)
  Receive Date: 20240524
  Receipt Date: 20240524
  Transmission Date: 20240716
  Serious: No
  Sender: FDA-Public Use
  Company Number: 2024A118406

PATIENT
  Sex: Male

DRUGS (1)
  1. BRILINTA [Suspect]
     Active Substance: TICAGRELOR
     Route: 048
     Dates: start: 20240430

REACTIONS (5)
  - Rash [Unknown]
  - Gait disturbance [Unknown]
  - Thinking abnormal [Unknown]
  - Vision blurred [Unknown]
  - Confusional state [Unknown]
